FAERS Safety Report 7723846-0 (Version None)
Quarter: 2011Q3

REPORT INFORMATION
  Report Type: 
  Country: None (occurrence: None)
  Receive Date: 20110826
  Receipt Date: 20110823
  Transmission Date: 20111222
  Serious: Yes (Other)
  Sender: FDA-Public Use
  Company Number: 201110737

PATIENT
  Age: 13 Year
  Sex: Female

DRUGS (1)
  1. LIORESAL [Suspect]
     Indication: MUSCLE SPASTICITY
     Dosage: 88.34 MCG, DAILY, INTRATHECAL
     Route: 037

REACTIONS (6)
  - DEVICE DISLOCATION [None]
  - SCAR [None]
  - DEVICE RELATED INFECTION [None]
  - HYPERSENSITIVITY [None]
  - IMPLANT SITE EFFUSION [None]
  - IMPLANT SITE ABSCESS [None]
